FAERS Safety Report 16713465 (Version 1)
Quarter: 2019Q3

REPORT INFORMATION
  Report Type: Report from Study
  Country: None (occurrence: BR)
  Receive Date: 20190819
  Receipt Date: 20190819
  Transmission Date: 20191004
  Serious: Yes (Hospitalization, Other)
  Sender: FDA-Public Use
  Company Number: BR-ABBVIE-19K-020-2889585-00

PATIENT
  Sex: Female

DRUGS (1)
  1. HUMIRA [Suspect]
     Active Substance: ADALIMUMAB
     Indication: RHEUMATOID ARTHRITIS
     Dosage: STOPPED 10 DAYS BEFORE HIP SURGERY
     Route: 058
     Dates: start: 20150926, end: 2019

REACTIONS (5)
  - Osteoarthritis [Unknown]
  - Infection [Unknown]
  - Expired product administered [Unknown]
  - Patient-device incompatibility [Unknown]
  - Immunodeficiency [Unknown]
